FAERS Safety Report 5975692-6 (Version None)
Quarter: 2008Q4

REPORT INFORMATION
  Report Type: 
  Country: None (occurrence: None)
  Receive Date: 20081202
  Receipt Date: 20081127
  Transmission Date: 20090506
  Serious: Yes (Death, Other)
  Sender: FDA-Public Use
  Company Number: PHHY2008IE27665

PATIENT
  Sex: Male

DRUGS (3)
  1. CLOZARIL [Suspect]
     Indication: SCHIZOPHRENIA
     Dosage: UNK
  2. RISPERIDONE [Concomitant]
     Indication: PSYCHOTIC DISORDER
     Dosage: 3 MG DAILY
     Dates: start: 20070701
  3. NALTREXONE [Concomitant]
     Dosage: 50 MG DAILY
     Route: 048

REACTIONS (6)
  - ABDOMINAL DISCOMFORT [None]
  - DYSPEPSIA [None]
  - GASTROINTESTINAL HAEMORRHAGE [None]
  - HAEMORRHAGE [None]
  - PEPTIC ULCER [None]
  - VOMITING [None]
